FAERS Safety Report 6978504-7 (Version None)
Quarter: 2010Q3

REPORT INFORMATION
  Report Type: 
  Country: None (occurrence: None)
  Receive Date: 20100913
  Receipt Date: 20100824
  Transmission Date: 20110219
  Serious: Yes (Death, Other)
  Sender: FDA-Public Use
  Company Number: US-BAYER-201031636NA

PATIENT
  Age: 62 Year
  Sex: Male

DRUGS (3)
  1. BETASERON [Suspect]
     Indication: MULTIPLE SCLEROSIS
     Route: 058
  2. AVONEX [Concomitant]
     Indication: MULTIPLE SCLEROSIS
     Dosage: TOTAL DAILY DOSE: 30 ?G
     Route: 030
     Dates: start: 20001121
  3. COPAXONE [Concomitant]

REACTIONS (1)
  - AMYOTROPHIC LATERAL SCLEROSIS [None]
